FAERS Safety Report 6494191-9 (Version None)
Quarter: 2009Q4

REPORT INFORMATION
  Report Type: 
  Country: None (occurrence: None)
  Receive Date: 20091214
  Receipt Date: 20090115
  Transmission Date: 20100525
  Serious: No
  Sender: FDA-Public Use
  Company Number: US-BRISTOL-MYERS SQUIBB COMPANY-14475271

PATIENT
  Age: 5 Decade
  Sex: Female

DRUGS (1)
  1. ABILIFY [Suspect]
     Indication: BIPOLAR DISORDER
     Dosage: INCREASED TO 10MG
     Dates: start: 20081022, end: 20090109

REACTIONS (2)
  - AKATHISIA [None]
  - MUSCLE TWITCHING [None]
